FAERS Safety Report 15856583 (Version 2)
Quarter: 2019Q1

REPORT INFORMATION
  Report Type: Spontaneous
  Country: FR (occurrence: FR)
  Receive Date: 20190123
  Receipt Date: 20190227
  Transmission Date: 20190417
  Serious: Yes (Hospitalization)
  Sender: FDA-Public Use
  Company Number: FR-ABBVIE-19S-056-2633612-00

PATIENT
  Age: 56 Year
  Sex: Female

DRUGS (1)
  1. MONOZECLAR [Suspect]
     Active Substance: CLARITHROMYCIN
     Indication: BRONCHITIS
     Dosage: 1000 MILLIGRAM, QD, COMPRIM? PELLICUL? ? LIB?RATION MODIFI?E
     Route: 048
     Dates: start: 20180613, end: 20180615

REACTIONS (1)
  - Gastroenteritis eosinophilic [Recovering/Resolving]

NARRATIVE: CASE EVENT DATE: 20180613
